FAERS Safety Report 17526766 (Version 3)
Quarter: 2020Q2

REPORT INFORMATION
  Report Type: Report from Study
  Country: EG (occurrence: EG)
  Receive Date: 20200310
  Receipt Date: 20200401
  Transmission Date: 20200713
  Serious: Yes (Hospitalization, Other)
  Sender: FDA-Public Use
  Company Number: EG-SEATTLE GENETICS-2019SGN02118

PATIENT
  Age: 20 Year
  Sex: Female

DRUGS (2)
  1. BRENTUXIMAB VEDOTIN-MPI [Suspect]
     Active Substance: BRENTUXIMAB VEDOTIN
     Indication: HODGKIN^S DISEASE
     Dosage: UNK
     Route: 042
     Dates: start: 20190603, end: 20200326
  2. BRENTUXIMAB VEDOTIN-MPI [Suspect]
     Active Substance: BRENTUXIMAB VEDOTIN
     Dosage: UNK
     Route: 042
     Dates: start: 20190603, end: 20200326

REACTIONS (14)
  - Decreased appetite [Unknown]
  - White blood cell count increased [Unknown]
  - Chest pain [Unknown]
  - Hypotension [Unknown]
  - Platelet count decreased [Unknown]
  - Off label use [Unknown]
  - Wrong dose [Unknown]
  - Bronchitis [Unknown]
  - Bradycardia [Unknown]
  - Fatigue [Unknown]
  - Dyspnoea [Unknown]
  - Hodgkin^s disease [Unknown]
  - Haemoglobin decreased [Not Recovered/Not Resolved]
  - Vomiting [Unknown]

NARRATIVE: CASE EVENT DATE: 20190515
